FAERS Safety Report 11832926 (Version 1)
Quarter: 2015Q4

REPORT INFORMATION
  Report Type: Spontaneous
  Country: FR (occurrence: FR)
  Receive Date: 20151214
  Receipt Date: 20151214
  Transmission Date: 20160305
  Serious: Yes (Disabling)
  Sender: FDA-Public Use
  Company Number: FR-TEVA-615121ISR

PATIENT
  Age: 53 Year
  Sex: Male

DRUGS (2)
  1. ROPINIROLE TEVA 2 MG [Suspect]
     Active Substance: ROPINIROLE
     Indication: RESTLESS LEGS SYNDROME
     Route: 048
     Dates: start: 20120401, end: 20151022
  2. ADARTREL [Suspect]
     Active Substance: ROPINIROLE
     Indication: RESTLESS LEGS SYNDROME
     Dosage: 4 MILLIGRAM DAILY;
     Route: 048
     Dates: start: 20070101, end: 20120331

REACTIONS (10)
  - Irritability [Recovered/Resolved with Sequelae]
  - Diarrhoea [Recovered/Resolved with Sequelae]
  - Impulse-control disorder [Recovered/Resolved with Sequelae]
  - Compulsive shopping [Recovered/Resolved with Sequelae]
  - Kleptomania [Recovered/Resolved with Sequelae]
  - Sudden onset of sleep [Recovered/Resolved with Sequelae]
  - Hypersexuality [Recovered/Resolved with Sequelae]
  - Aerophagia [Recovered/Resolved with Sequelae]
  - Alcoholism [Recovered/Resolved with Sequelae]
  - Nausea [Recovered/Resolved with Sequelae]

NARRATIVE: CASE EVENT DATE: 2007
